FAERS Safety Report 9218188 (Version 1)
Quarter: 2013Q2

REPORT INFORMATION
  Report Type: Spontaneous
  Country: IT (occurrence: IT)
  Receive Date: 20130408
  Receipt Date: 20130408
  Transmission Date: 20140414
  Serious: Yes (Hospitalization)
  Sender: FDA-Public Use
  Company Number: PHHY2013IT033118

PATIENT
  Sex: Male

DRUGS (2)
  1. AMOXICILLIN [Suspect]
     Route: 048
     Dates: start: 20130308, end: 20130308
  2. RANIDIL [Concomitant]

REACTIONS (3)
  - Abdominal pain [Recovering/Resolving]
  - Dyspnoea [Recovering/Resolving]
  - Generalised erythema [Recovering/Resolving]
